FAERS Safety Report 7991603-6 (Version None)
Quarter: 2011Q4

REPORT INFORMATION
  Report Type: 
  Country: None (occurrence: None)
  Receive Date: 20111219
  Receipt Date: 20111102
  Transmission Date: 20120403
  Serious: No
  Sender: FDA-Public Use
  Company Number: US-ALLERGAN-1114463US

PATIENT
  Age: 65 Year
  Sex: Female

DRUGS (1)
  1. LUMIGAN [Suspect]
     Indication: INTRAOCULAR PRESSURE INCREASED
     Dosage: 2 GTT, QPM
     Route: 047
     Dates: start: 20110101

REACTIONS (7)
  - ERYTHEMA OF EYELID [None]
  - BURNING SENSATION [None]
  - EYE PAIN [None]
  - EYE DISORDER [None]
  - CONJUNCTIVAL OEDEMA [None]
  - SCLERAL HYPERAEMIA [None]
  - PAIN [None]
